FAERS Safety Report 5820019-3 (Version None)
Quarter: 2008Q3

REPORT INFORMATION
  Report Type: 
  Country: None (occurrence: None)
  Receive Date: 20080718
  Receipt Date: 20080718
  Transmission Date: 20090109
  Serious: Yes (Disabling)
  Sender: FDA-Public Use
  Company Number: None

PATIENT
  Age: 41 Year
  Sex: Male

DRUGS (2)
  1. AMOXICILLIN [Suspect]
     Indication: BRONCHIOLITIS
     Dosage: PO
     Route: 048
  2. AMOXICILLIN [Suspect]
     Indication: OTITIS MEDIA ACUTE
     Dosage: PO
     Route: 048

REACTIONS (5)
  - DIARRHOEA [None]
  - DYSPNOEA [None]
  - RASH ERYTHEMATOUS [None]
  - RASH GENERALISED [None]
  - RASH MACULAR [None]
